FAERS Safety Report 6712746-0 (Version None)
Quarter: 2010Q2

REPORT INFORMATION
  Report Type: 
  Country: None (occurrence: None)
  Receive Date: 20100505
  Receipt Date: 20100505
  Transmission Date: 20101027
  Serious: Yes (Hospitalization)
  Sender: FDA-Public Use
  Company Number: None

PATIENT
  Age: 88 Year
  Sex: Male
  Weight: 75.7 kg

DRUGS (2)
  1. QUETIAPINE [Suspect]
     Indication: DEMENTIA
     Dosage: 50 MG AT BEDTIME PO
     Route: 048
     Dates: start: 20100331, end: 20100401
  2. QUETIAPINE [Suspect]
     Indication: INSOMNIA
     Dosage: 50 MG AT BEDTIME PO
     Route: 048
     Dates: start: 20100331, end: 20100401

REACTIONS (5)
  - ABNORMAL BEHAVIOUR [None]
  - AGITATION [None]
  - DEMENTIA [None]
  - HOMICIDAL IDEATION [None]
  - PSYCHOTIC DISORDER [None]
